FAERS Safety Report 6567827-1 (Version None)
Quarter: 2010Q1

REPORT INFORMATION
  Report Type: 
  Country: None (occurrence: None)
  Receive Date: 20100203
  Receipt Date: 20100125
  Transmission Date: 20100710
  Serious: Yes (Other)
  Sender: FDA-Public Use
  Company Number: US-JNJFOC-20091203508

PATIENT
  Sex: Male
  Weight: 70.76 kg

DRUGS (2)
  1. INVEGA SUSTENNA [Suspect]
     Indication: SCHIZOPHRENIA
     Route: 030
  2. INVEGA SUSTENNA [Suspect]
     Route: 030

REACTIONS (4)
  - DYSTONIA [None]
  - EYE MOVEMENT DISORDER [None]
  - FEELING ABNORMAL [None]
  - JOINT CREPITATION [None]
